FAERS Safety Report 9336425 (Version 2)
Quarter: 2013Q2

REPORT INFORMATION
  Report Type: Spontaneous
  Country: FR (occurrence: FR)
  Receive Date: 20130607
  Receipt Date: 20130613
  Transmission Date: 20140414
  Serious: No
  Sender: FDA-Public Use
  Company Number: FR-JNJFOC-20130522733

PATIENT
  Sex: Female

DRUGS (1)
  1. RISPERDAL CONSTA LP [Suspect]
     Indication: PRODUCT USED FOR UNKNOWN INDICATION
     Route: 030
     Dates: start: 20130529

REACTIONS (1)
  - Exposure during pregnancy [Unknown]
